FAERS Safety Report 5413060-6 (Version None)
Quarter: 2007Q3

REPORT INFORMATION
  Report Type: 
  Country: None (occurrence: None)
  Receive Date: 20070813
  Receipt Date: 20070806
  Transmission Date: 20080115
  Serious: Yes (Death, Hospitalization)
  Sender: FDA-Public Use
  Company Number: AR-PFIZER INC-2007062798

PATIENT
  Age: 71 Year
  Sex: Male

DRUGS (3)
  1. SUTENT [Suspect]
     Indication: RENAL CELL CARCINOMA STAGE UNSPECIFIED
     Route: 048
  2. ENALAPRIL MALEATE [Concomitant]
     Route: 048
  3. ALPRAZOLAM [Concomitant]
     Route: 048

REACTIONS (3)
  - CARDIO-RESPIRATORY ARREST [None]
  - HEMIPARESIS [None]
  - SYNCOPE [None]
